FAERS Safety Report 10540287 (Version 2)
Quarter: 2017Q3

REPORT INFORMATION
  Report Type: Spontaneous
  Country: US (occurrence: US)
  Receive Date: 20141024
  Receipt Date: 20170724
  Transmission Date: 20171127
  Serious: No
  Sender: FDA-Public Use
  Company Number: US-PFIZER INC-2014291028

PATIENT
  Age: 39 Year
  Sex: Male
  Weight: 73.1 kg

DRUGS (7)
  1. TYSABRI [Concomitant]
     Active Substance: NATALIZUMAB
     Indication: MULTIPLE SCLEROSIS
     Dosage: UNK, MONTHLY
  2. CHANTIX [Suspect]
     Active Substance: VARENICLINE TARTRATE
     Indication: SMOKING CESSATION THERAPY
     Dosage: 1 MG, 2X/DAY
     Dates: start: 2014
  3. TIZANIDINE. [Concomitant]
     Active Substance: TIZANIDINE
     Dosage: 6 MG, 2X/DAY (2 MG, 3 TABLETS IN THE MORNING AND 3 TABLETS IN THE EVENING)
  4. HYOSCYAMINE. [Concomitant]
     Active Substance: HYOSCYAMINE
     Indication: DYSURIA
     Dosage: 0.357 MG, 1X/DAY AT NIGHT
  5. FENTANYL. [Concomitant]
     Active Substance: FENTANYL
     Indication: PAIN
     Dosage: 100 UG, EVERY 48 HOURS
     Route: 062
  6. ZOLPIDEM [Concomitant]
     Active Substance: ZOLPIDEM\ZOLPIDEM TARTRATE
     Indication: SLEEP DISORDER
     Dosage: 12.5 MG, 1X/DAY (AT BEDTIME)
  7. FENTANYL. [Concomitant]
     Active Substance: FENTANYL
     Indication: MUSCLE SPASMS

REACTIONS (2)
  - Drug dispensing error [Unknown]
  - Nausea [Not Recovered/Not Resolved]

NARRATIVE: CASE EVENT DATE: 2014
